FAERS Safety Report 12372044 (Version 4)
Quarter: 2016Q3

REPORT INFORMATION
  Report Type: Report from Study
  Country: CA (occurrence: CA)
  Receive Date: 20160516
  Receipt Date: 20160831
  Transmission Date: 20161109
  Serious: Yes (Death)
  Sender: FDA-Public Use
  Company Number: CA-ROCHE-1757145

PATIENT
  Age: 66 Year
  Sex: Male
  Weight: 79.9 kg

DRUGS (22)
  1. INDAPAMIDE. [Concomitant]
     Active Substance: INDAPAMIDE
     Indication: HYPERTENSION
     Route: 065
     Dates: start: 2005
  2. RAMIPRIL. [Concomitant]
     Active Substance: RAMIPRIL
     Indication: HYPERTENSION
     Route: 065
     Dates: start: 2005
  3. BENADRYL [Concomitant]
     Active Substance: DIPHENHYDRAMINE HYDROCHLORIDE
     Indication: PROPHYLAXIS
     Dosage: RECEIVED SUBSEQUENT DOSES ON: 01/OCT/2015, 08/OCT/2015, 21/OCT/2015, 18/NOV/2015, 16/DEC/2015, 14/J
     Route: 065
     Dates: start: 20150924, end: 20150924
  4. METOPROLOL. [Concomitant]
     Active Substance: METOPROLOL
     Indication: HYPERTENSION
     Route: 065
     Dates: start: 2005
  5. VALTREX [Concomitant]
     Active Substance: VALACYCLOVIR HYDROCHLORIDE
     Indication: PROPHYLAXIS
     Dosage: SHINGLES PROPHYLAXIS
     Route: 065
     Dates: start: 20150922
  6. AZITHROMYCIN ANHYDROUS. [Concomitant]
     Active Substance: AZITHROMYCIN ANHYDROUS
     Indication: PNEUMONIA
     Route: 065
     Dates: start: 20160129
  7. IBRUTINIB [Suspect]
     Active Substance: IBRUTINIB
     Route: 048
     Dates: start: 20160510, end: 20160511
  8. AMLODIPINE [Concomitant]
     Active Substance: AMLODIPINE BESYLATE
     Indication: HYPERTENSION
     Route: 065
     Dates: start: 2005
  9. DEXAMETHASONE. [Concomitant]
     Active Substance: DEXAMETHASONE
     Dosage: SUBSEQUENT DOSE: 25/SEP/2015?PROPHYLAXIS FOR INFUSION REACTION
     Route: 065
     Dates: start: 20150924
  10. MAGNESIUM SULFATE. [Concomitant]
     Active Substance: MAGNESIUM SULFATE
     Indication: HYPOMAGNESAEMIA
     Route: 065
     Dates: start: 20160129
  11. ZOFRAN [Concomitant]
     Active Substance: ONDANSETRON HYDROCHLORIDE
     Indication: NAUSEA
     Route: 065
     Dates: start: 20160129
  12. ATORVASTATIN [Concomitant]
     Active Substance: ATORVASTATIN
     Indication: HYPERLIPIDAEMIA
     Route: 065
     Dates: start: 2003
  13. LEVOFLOXACIN. [Concomitant]
     Active Substance: LEVOFLOXACIN
     Indication: PNEUMONIA
     Route: 065
     Dates: start: 20160130
  14. TYLENOL [Concomitant]
     Active Substance: ACETAMINOPHEN
     Indication: PROPHYLAXIS
     Dosage: RECEIVED SUBSEQUENT DOSES ON: 01/OCT/2015, 08/OCT/2015, 21/OCT/2015, 18/NOV/2015, 16/DEC/2015, 14/J
     Route: 065
     Dates: start: 20150924, end: 20150924
  15. SPIRIVA [Concomitant]
     Active Substance: TIOTROPIUM BROMIDE MONOHYDRATE
     Indication: CHRONIC OBSTRUCTIVE PULMONARY DISEASE
     Route: 065
     Dates: start: 2012
  16. SEPTRA SS [Concomitant]
     Dosage: BACTERIAL INFECTION PROPHYLAXIS
     Route: 065
     Dates: start: 20150922
  17. FLU SHOT [Concomitant]
     Active Substance: INFLUENZA VIRUS VACCINE
     Dosage: INFLUENZA PROPHYLAXIS
     Route: 065
     Dates: start: 20151027
  18. OBINUTUZUMAB [Suspect]
     Active Substance: OBINUTUZUMAB
     Indication: CHRONIC LYMPHOCYTIC LEUKAEMIA
     Dosage: LAST DOSE PRIOR TO AE 10/FEB/2016
     Route: 042
     Dates: start: 20150924
  19. CEFTRIAXONE. [Concomitant]
     Active Substance: CEFTRIAXONE
     Indication: PNEUMONIA
     Route: 065
     Dates: start: 20160129
  20. IBRUTINIB [Suspect]
     Active Substance: IBRUTINIB
     Indication: CHRONIC LYMPHOCYTIC LEUKAEMIA
     Dosage: LAST DOSE PRIOR TO AE 04/MAY/2016
     Route: 048
     Dates: start: 20150924, end: 20160505
  21. ALLOPURINOL. [Concomitant]
     Active Substance: ALLOPURINOL
     Dosage: TLS PROPHYLAXIS
     Route: 065
     Dates: start: 20150922
  22. TYLENOL [Concomitant]
     Active Substance: ACETAMINOPHEN
     Indication: PNEUMONIA

REACTIONS (1)
  - Adenocarcinoma gastric [Fatal]

NARRATIVE: CASE EVENT DATE: 20160506
